FAERS Safety Report 8127804-6 (Version None)
Quarter: 2012Q1

REPORT INFORMATION
  Report Type: 
  Country: None (occurrence: None)
  Receive Date: 20120210
  Receipt Date: 20120201
  Transmission Date: 20120608
  Serious: Yes (Other)
  Sender: FDA-Public Use
  Company Number: AU-ASTRAZENECA-2012SE06846

PATIENT
  Age: 22645 Day
  Sex: Female

DRUGS (8)
  1. SEROQUEL XR [Suspect]
     Route: 048
     Dates: start: 20111102, end: 20120131
  2. METFORMIN HCL [Concomitant]
  3. PRILACE [Concomitant]
  4. ACETAMINOPHEN AND CODEINE PHOSPHATE [Concomitant]
     Dosage: AS REQUIRED
  5. LEXAM [Concomitant]
  6. SIMVASTATIN [Concomitant]
  7. INSULIN [Concomitant]
     Dosage: 8 U/S AT NIGHT
  8. RABEPRAZOLE SODIUM [Concomitant]

REACTIONS (1)
  - DEEP VEIN THROMBOSIS [None]
